FAERS Safety Report 10361166 (Version 1)
Quarter: 2014Q3

REPORT INFORMATION
  Report Type: Spontaneous
  Country: DE (occurrence: None)
  Receive Date: 20140731
  Receipt Date: 20140731
  Transmission Date: 20150326
  Serious: Yes (Other)
  Sender: FDA-Public Use
  Company Number: 2014-1764-SPO

PATIENT
  Age: 51 Year
  Sex: Female
  Weight: 85 kg

DRUGS (1)
  1. GYNOKADIN [Suspect]
     Active Substance: ESTRADIOL
     Indication: HORMONE THERAPY
     Dosage: ^1 X PRO TAG^ , 1 IN 1 D, TRANSDERMAL
     Route: 062
     Dates: start: 20140311

REACTIONS (2)
  - Hypertensive crisis [None]
  - Heart rate decreased [None]

NARRATIVE: CASE EVENT DATE: 20140312
